FAERS Safety Report 9370195 (Version 1)
Quarter: 2013Q2

REPORT INFORMATION
  Report Type: Spontaneous
  Country: PL (occurrence: PL)
  Receive Date: 20130626
  Receipt Date: 20130626
  Transmission Date: 20140414
  Serious: Yes (Other)
  Sender: FDA-Public Use
  Company Number: PL-ASTRAZENECA-2013SE46700

PATIENT
  Age: 9466 Day
  Sex: Female
  Weight: 73 kg

DRUGS (1)
  1. MARCAINE [Suspect]
     Indication: ANALGESIC THERAPY
     Route: 037
     Dates: start: 20130617, end: 20130617

REACTIONS (2)
  - Drug effect delayed [Recovered/Resolved]
  - Exposure during pregnancy [None]
